FAERS Safety Report 4458420-5 (Version None)
Quarter: 2004Q3

REPORT INFORMATION
  Report Type: 
  Country: None (occurrence: None)
  Receive Date: 20040922
  Receipt Date: 20040906
  Transmission Date: 20050211
  Serious: Yes (Death)
  Sender: FDA-Public Use
  Company Number: AU_040908034

PATIENT
  Age: 50 Year
  Sex: Female
  Weight: 97 kg

DRUGS (2)
  1. ZYPREXA [Suspect]
     Indication: SCHIZOPHRENIA
     Dosage: 10 MG/1 DAY
     Dates: start: 20040318, end: 20040402
  2. RISPERIDONE [Concomitant]

REACTIONS (3)
  - DRUG TOXICITY [None]
  - HEPATIC STEATOSIS [None]
  - LIVER DISORDER [None]
